FAERS Safety Report 13837273 (Version 1)
Quarter: 2017Q3

REPORT INFORMATION
  Report Type: Spontaneous
  Country: US (occurrence: US)
  Receive Date: 20170804
  Receipt Date: 20170804
  Transmission Date: 20171127
  Serious: No
  Sender: FDA-Public Use
  Company Number: US-ROCHE-1008248

PATIENT
  Age: 76 Year
  Sex: Female

DRUGS (2)
  1. BONIVA [Suspect]
     Active Substance: IBANDRONATE SODIUM
     Indication: PRODUCT USED FOR UNKNOWN INDICATION
     Route: 048
  2. BABY ASPIRIN [Concomitant]
     Active Substance: ASPIRIN
     Route: 048

REACTIONS (4)
  - Tooth fracture [Recovered/Resolved]
  - Oesophageal irritation [Not Recovered/Not Resolved]
  - Helicobacter gastritis [Recovered/Resolved]
  - Bone density abnormal [Not Recovered/Not Resolved]
